FAERS Safety Report 6908026-0 (Version None)
Quarter: 2010Q3

REPORT INFORMATION
  Report Type: 
  Country: None (occurrence: None)
  Receive Date: 20100805
  Receipt Date: 20100729
  Transmission Date: 20110219
  Serious: Yes (Hospitalization)
  Sender: FDA-Public Use
  Company Number: US-ELI_LILLY_AND_COMPANY-US201002001736

PATIENT
  Sex: Female
  Weight: 72.562 kg

DRUGS (10)
  1. BYETTA [Suspect]
     Indication: TYPE 2 DIABETES MELLITUS
     Dosage: 5 UG, 2/D
     Route: 058
  2. BYETTA [Suspect]
     Dosage: 10 UG, DAILY (1/D)
     Dates: end: 20100104
  3. BYETTA [Suspect]
     Dosage: 10 UG, 2/D
     Route: 058
     Dates: start: 20100201
  4. BYETTA [Suspect]
     Dosage: 5 UG, 2/D
     Route: 058
  5. BYETTA [Suspect]
     Dosage: 5 UG, 2/D
     Route: 058
  6. BYETTA [Suspect]
     Dosage: 10 UG, 2/D
     Route: 058
  7. LANTUS [Concomitant]
     Indication: TYPE 2 DIABETES MELLITUS
     Dates: end: 20100201
  8. HUMALOG [Concomitant]
     Indication: TYPE 2 DIABETES MELLITUS
     Dates: end: 20100201
  9. AVANDAMET [Concomitant]
     Indication: TYPE 2 DIABETES MELLITUS
  10. GLIPIZIDE [Concomitant]
     Indication: TYPE 2 DIABETES MELLITUS

REACTIONS (14)
  - ABDOMINAL PAIN UPPER [None]
  - CHOLELITHIASIS [None]
  - CLOSTRIDIAL INFECTION [None]
  - COUGH [None]
  - DIARRHOEA [None]
  - GALLBLADDER DISORDER [None]
  - LOSS OF CONSCIOUSNESS [None]
  - MALAISE [None]
  - NAUSEA [None]
  - OFF LABEL USE [None]
  - PNEUMONIA [None]
  - RHINORRHOEA [None]
  - SEPTIC SHOCK [None]
  - VOMITING [None]
